FAERS Safety Report 7350637-5 (Version None)
Quarter: 2011Q1

REPORT INFORMATION
  Report Type: 
  Country: None (occurrence: None)
  Receive Date: 20110314
  Receipt Date: 20100916
  Transmission Date: 20110831
  Serious: Yes (Hospitalization, Other)
  Sender: FDA-Public Use
  Company Number: US-BAYER-201020098NA

PATIENT
  Sex: Female
  Weight: 59.864 kg

DRUGS (6)
  1. YASMIN [Suspect]
     Indication: PRODUCT USED FOR UNKNOWN INDICATION
     Route: 048
     Dates: start: 20050526, end: 20071001
  2. NERVOUS SYSTEM [Concomitant]
     Indication: MIGRAINE
  3. ORTHO TRI-CYCLEN [Concomitant]
  4. TRINESSA [Concomitant]
     Dosage: UNK
     Dates: start: 20060708, end: 20060808
  5. YAZ [Suspect]
     Indication: PRODUCT USED FOR UNKNOWN INDICATION
     Route: 048
     Dates: start: 20071101, end: 20090501
  6. ALEVE [Concomitant]

REACTIONS (8)
  - CHOLELITHIASIS [None]
  - CHOLECYSTITIS [None]
  - CHOLECYSTITIS CHRONIC [None]
  - VOMITING [None]
  - ABDOMINAL DISTENSION [None]
  - ABDOMINAL PAIN UPPER [None]
  - NAUSEA [None]
  - PAIN [None]
